FAERS Safety Report 20716783 (Version 1)
Quarter: 2022Q2

REPORT INFORMATION
  Report Type: Spontaneous
  Country: CA (occurrence: CA)
  Receive Date: 20220416
  Receipt Date: 20220416
  Transmission Date: 20220721
  Serious: Yes (Hospitalization)
  Sender: FDA-Public Use
  Company Number: None

PATIENT
  Age: 63 Year
  Sex: Female
  Weight: 46 kg

DRUGS (18)
  1. FLUOROURACIL [Suspect]
     Active Substance: FLUOROURACIL
     Indication: Pancreatic carcinoma
  2. IRINOTECAN HYDROCHLORIDE [Suspect]
     Active Substance: IRINOTECAN HYDROCHLORIDE
     Indication: Pancreatic carcinoma
     Dosage: DOSAGE FORM: SOLUTION INTRAVENOUS
  3. OXALIPLATIN [Suspect]
     Active Substance: OXALIPLATIN
     Indication: Pancreatic carcinoma
  4. LEUCOVORIN [Suspect]
     Active Substance: LEUCOVORIN
     Indication: Pancreatic carcinoma
  5. ATROPINE [Concomitant]
     Active Substance: ATROPINE
  6. CLONAZEPAM [Concomitant]
     Active Substance: CLONAZEPAM
  7. DEXAMETHASONE [Concomitant]
     Active Substance: DEXAMETHASONE
     Dosage: DOSAGE FORM: LIQUID INTRA- ARTICULAR
  8. DOMPERIDONE [Concomitant]
     Active Substance: DOMPERIDONE
  9. ESOMEPRAZOLE [Concomitant]
     Active Substance: ESOMEPRAZOLE
  10. LOPERAMIDE [Concomitant]
     Active Substance: LOPERAMIDE
  11. LORAZEPAM [Concomitant]
     Active Substance: LORAZEPAM
  12. MORPHINE [Concomitant]
     Active Substance: MORPHINE
  13. OLANZAPINE [Concomitant]
     Active Substance: OLANZAPINE
  14. ONDANSETRON [Concomitant]
     Active Substance: ONDANSETRON
  15. PANCRELIPASE [Concomitant]
     Active Substance: PANCRELIPASE
  16. POLYETHYLENE GLYCOL [Concomitant]
     Active Substance: POLYETHYLENE GLYCOL
  17. PREGABALIN [Concomitant]
     Active Substance: PREGABALIN
  18. PROCHLORPERAZINE [Concomitant]
     Active Substance: PROCHLORPERAZINE

REACTIONS (2)
  - Febrile neutropenia [Recovered/Resolved]
  - Off label use [Unknown]
